FAERS Safety Report 24249979 (Version 1)
Quarter: 2024Q3

REPORT INFORMATION
  Report Type: Spontaneous
  Country: CA (occurrence: CA)
  Receive Date: 20240826
  Receipt Date: 20240826
  Transmission Date: 20241017
  Serious: Yes (Hospitalization, Other)
  Sender: MYLAN
  Company Number: CA-MYLANLABS-2024M1077321

PATIENT
  Age: 54 Year
  Sex: Male
  Weight: 61 kg

DRUGS (2)
  1. PHENYTOIN [Suspect]
     Active Substance: PHENYTOIN
     Indication: Seizure
     Dosage: 100 MILLIGRAM, TID (3 EVERY 1 DAYS)
     Route: 065
  2. PHENYTOIN [Suspect]
     Active Substance: PHENYTOIN
     Dosage: UNK
     Route: 048

REACTIONS (7)
  - Agitation [Recovered/Resolved]
  - Coma [Recovered/Resolved]
  - Delirium [Recovered/Resolved]
  - Overdose [Recovered/Resolved]
  - Toxicity to various agents [Recovered/Resolved]
  - Ataxia [Recovered/Resolved]
  - Confusional state [Recovered/Resolved]
